FAERS Safety Report 21042691 (Version 2)
Quarter: 2022Q3

REPORT INFORMATION
  Report Type: Spontaneous
  Country: BO (occurrence: None)
  Receive Date: 20220705
  Receipt Date: 20220901
  Transmission Date: 20221027
  Serious: Yes (Other)
  Sender: FDA-Public Use
  Company Number: BO-ROCHE-3126647

PATIENT
  Age: 44 Year
  Sex: Female

DRUGS (5)
  1. TRASTUZUMAB [Suspect]
     Active Substance: TRASTUZUMAB
     Indication: Breast cancer stage II
     Route: 065
     Dates: start: 201909, end: 202011
  2. PERTUZUMAB [Suspect]
     Active Substance: PERTUZUMAB
     Indication: Breast cancer stage II
     Route: 065
     Dates: start: 201909, end: 202011
  3. ADO-TRASTUZUMAB EMTANSINE [Suspect]
     Active Substance: ADO-TRASTUZUMAB EMTANSINE
     Indication: Breast cancer stage II
     Route: 065
  4. DOCETAXEL [Concomitant]
     Active Substance: DOCETAXEL
     Indication: Breast cancer stage II
     Dates: start: 201909, end: 202011
  5. CARBOPLATIN [Concomitant]
     Active Substance: CARBOPLATIN
     Indication: Breast cancer stage II

REACTIONS (9)
  - Invasive ductal breast carcinoma [Recovered/Resolved]
  - Inappropriate schedule of product administration [Recovered/Resolved]
  - Muscle disorder [Recovered/Resolved]
  - Muscle disorder [Recovered/Resolved]
  - Skin hypertrophy [Recovered/Resolved]
  - Breast neoplasm [Recovered/Resolved]
  - Hepatomegaly [Recovered/Resolved]
  - Mitral valve incompetence [Recovered/Resolved]
  - Ill-defined disorder [Recovered/Resolved]

NARRATIVE: CASE EVENT DATE: 20210101
